FAERS Safety Report 10792426 (Version 1)
Quarter: 2015Q1

REPORT INFORMATION
  Report Type: Spontaneous
  Country: CH (occurrence: None)
  Receive Date: 20150211
  Receipt Date: 20150211
  Transmission Date: 20150721
  Serious: Yes (Death, Hospitalization)
  Sender: FDA-Public Use
  Company Number: 20150063

PATIENT
  Age: 51 Year
  Sex: Female

DRUGS (19)
  1. AMIKACIN SULFATE. [Concomitant]
     Active Substance: AMIKACIN SULFATE
  2. DALTEPARIN SODIUM [Concomitant]
     Active Substance: DALTEPARIN SODIUM
  3. FLUINDIONE [Concomitant]
     Active Substance: FLUINDIONE
  4. IMUREL [Suspect]
     Active Substance: AZATHIOPRINE SODIUM
     Indication: SYSTEMIC LUPUS ERYTHEMATOSUS
  5. NEFOPAM HYDROCHLORIDE [Concomitant]
     Active Substance: NEFOPAM HYDROCHLORIDE
  6. ROVAMYCINE (SPIRAMYCIN) [Concomitant]
  7. TIENAM (IMIPENEM, CILASTATIN SODIUM) [Concomitant]
  8. DURAGESIC [Concomitant]
     Active Substance: FENTANYL
  9. CALCIDOSE (CALCIUM CARBONATE) [Concomitant]
  10. SUFENTANIL [Concomitant]
     Active Substance: SUFENTANIL
  11. VENOFER [Suspect]
     Active Substance: IRON SUCROSE
     Indication: ANAEMIA POSTOPERATIVE
     Route: 042
     Dates: start: 20140926, end: 20140926
  12. HYDROCORTANCYL [Suspect]
     Active Substance: PREDNISONE
     Indication: PRODUCT USED FOR UNKNOWN INDICATION
  13. DEPAKINE (VALPROIC ACID, VALPROIC SODIUM) [Concomitant]
  14. TRAMADOL HYDROCHLORIDEE [Concomitant]
  15. ESOMEPRAZOLE MAGNESIUM. [Concomitant]
     Active Substance: ESOMEPRAZOLE MAGNESIUM
  16. CLAFOBAN (CEFOTAXIME SODIUM) [Concomitant]
  17. URBANIL (CLOBAZAM) [Concomitant]
  18. ZYVOXID (LINEZOLID) [Concomitant]
  19. METOCLOPRAMIDE HYDROCHLORIDE. [Concomitant]
     Active Substance: METOCLOPRAMIDE HYDROCHLORIDE

REACTIONS (29)
  - Livedo reticularis [None]
  - White blood cell count decreased [None]
  - Thrombocytopenia [None]
  - Amputation [None]
  - Vessel puncture site inflammation [None]
  - Herpes virus infection [None]
  - Multi-organ failure [None]
  - Hyperthermia [None]
  - General physical health deterioration [None]
  - Metabolic acidosis [None]
  - Acute kidney injury [None]
  - Septic shock [None]
  - Blood pressure decreased [None]
  - Streptococcal infection [None]
  - Necrosis [None]
  - Necrotising fasciitis [None]
  - Cardiogenic shock [None]
  - C-reactive protein increased [None]
  - Jaundice [None]
  - Skin discolouration [None]
  - Wrong technique in drug usage process [None]
  - Extravasation [None]
  - Pyrexia [None]
  - Disseminated intravascular coagulation [None]
  - Tachycardia [None]
  - Vein disorder [None]
  - Liver function test abnormal [None]
  - Haemodynamic instability [None]
  - Aspergillus infection [None]

NARRATIVE: CASE EVENT DATE: 201409
